FAERS Safety Report 8582113-6 (Version None)
Quarter: 2012Q3

REPORT INFORMATION
  Report Type: 
  Country: None (occurrence: None)
  Receive Date: 20120809
  Receipt Date: 20120807
  Transmission Date: 20120928
  Serious: Yes (Life-Threatening, Hospitalization, Other)
  Sender: FDA-Public Use
  Company Number: PHHY2012FR068378

PATIENT
  Sex: Female

DRUGS (11)
  1. METFORMIN HYDROCHLORIDE [Concomitant]
     Indication: TYPE 2 DIABETES MELLITUS
     Dosage: 2 MG, DAILY
     Route: 048
     Dates: start: 20040101
  2. HALDOL [Concomitant]
     Indication: SCHIZOPHRENIA
     Dosage: 50 MG,
     Route: 030
  3. IRBESARTAN AND HYDROCHLOROTHIAZIDE [Concomitant]
     Indication: HYPERTENSION
     Dosage: 325 MG, DAILY
  4. TENORMIN [Concomitant]
     Dosage: 25 MG, DAILY
     Dates: start: 20120703
  5. FERROUS SULFATE TAB [Concomitant]
     Dosage: 80 MG, DAILY
  6. NICARDIPINE HCL [Concomitant]
     Indication: HYPERTENSION
     Dosage: 50 MG, DAILY
  7. DITROPAN [Concomitant]
     Indication: URINARY INCONTINENCE
     Dosage: 5 MG, DAILY
  8. CLOZAPINE [Suspect]
     Indication: SCHIZOPHRENIA
     Dosage: 325 MG, (25 MG IN THE MORNING AND 100 MG IN THE EVENING)
     Route: 048
     Dates: start: 20120301, end: 20120603
  9. TENORMIN [Concomitant]
     Indication: HYPERTENSION
     Dosage: 50 MG, DAILY
     Route: 048
  10. AMARYL [Concomitant]
     Indication: TYPE 2 DIABETES MELLITUS
     Dosage: 4 MG, DAILY
  11. AMLODIPINE BESYLATE [Concomitant]

REACTIONS (15)
  - COMA [None]
  - HEPATIC STEATOSIS [None]
  - SOMNOLENCE [None]
  - HEPATIC ISCHAEMIA [None]
  - HEPATIC ENCEPHALOPATHY [None]
  - RENAL FAILURE [None]
  - BLOOD PRESSURE DECREASED [None]
  - FATIGUE [None]
  - DRUG-INDUCED LIVER INJURY [None]
  - PSYCHOTIC DISORDER [None]
  - ELECTROENCEPHALOGRAM ABNORMAL [None]
  - RHABDOMYOLYSIS [None]
  - VOMITING [None]
  - CYTOLYTIC HEPATITIS [None]
  - HEPATITIS FULMINANT [None]
